FAERS Safety Report 9562392 (Version 1)
Quarter: 2013Q3

REPORT INFORMATION
  Report Type: Spontaneous
  Country: ES (occurrence: ES)
  Receive Date: 20130927
  Receipt Date: 20130927
  Transmission Date: 20140515
  Serious: Yes (Other)
  Sender: FDA-Public Use
  Company Number: ES-JNJFOC-20130911716

PATIENT
  Sex: Male

DRUGS (1)
  1. EVRA [Suspect]
     Indication: CONTRACEPTION
     Dosage: MOTHER^S DOSING
     Route: 064

REACTIONS (3)
  - Retroplacental haematoma [Recovered/Resolved]
  - Foetal exposure during pregnancy [Recovered/Resolved]
  - Hyperthyroidism [Unknown]
